FAERS Safety Report 25140965 (Version 1)
Quarter: 2025Q1

REPORT INFORMATION
  Report Type: Spontaneous
  Country: US (occurrence: US)
  Receive Date: 20250331
  Receipt Date: 20250331
  Transmission Date: 20250409
  Serious: Yes (Hospitalization)
  Sender: DR REDDYS
  Company Number: None

PATIENT
  Age: 66 Year
  Sex: Female

DRUGS (6)
  1. DOXORUBICIN [Suspect]
     Active Substance: DOXORUBICIN
     Indication: Invasive ductal breast carcinoma
  2. DOXORUBICIN [Suspect]
     Active Substance: DOXORUBICIN
     Indication: Hormone receptor positive HER2 negative breast cancer
  3. CYCLOPHOSPHAMIDE [Suspect]
     Active Substance: CYCLOPHOSPHAMIDE
     Indication: Invasive ductal breast carcinoma
  4. CYCLOPHOSPHAMIDE [Suspect]
     Active Substance: CYCLOPHOSPHAMIDE
     Indication: Hormone receptor positive HER2 negative breast cancer
  5. PREDNISONE [Concomitant]
     Active Substance: PREDNISONE
     Indication: Pyoderma gangrenosum
     Dosage: 60 MG/A SLOW STEROID TAPER WAS STARTED DURING CHEMOTHERAPY
  6. PREDNISONE [Concomitant]
     Active Substance: PREDNISONE
     Dosage: 60 MG/A SLOW STEROID TAPER WAS STARTED DURING CHEMOTHERAPY

REACTIONS (1)
  - Febrile neutropenia [Unknown]
